FAERS Safety Report 5822521-7 (Version None)
Quarter: 2008Q3

REPORT INFORMATION
  Report Type: 
  Country: None (occurrence: None)
  Receive Date: 20080725
  Receipt Date: 20071119
  Transmission Date: 20090109
  Serious: No
  Sender: FDA-Public Use
  Company Number: US-AMGEN-KDL253574

PATIENT
  Sex: Male

DRUGS (6)
  1. PROCRIT [Suspect]
     Indication: ANAEMIA
     Dates: start: 19970101
  2. ANDROGEL [Concomitant]
     Dates: start: 20071119
  3. ANDROGEL [Concomitant]
     Dates: start: 20071101
  4. ADDERALL 10 [Concomitant]
  5. NICARDIPINE HYDROCHLORIDE [Concomitant]
  6. MAGNESIUM SULFATE [Concomitant]
     Route: 042
     Dates: start: 19910101

REACTIONS (4)
  - HAEMATOCRIT INCREASED [None]
  - HYPERTENSION [None]
  - OEDEMA PERIPHERAL [None]
  - SURGERY [None]
